FAERS Safety Report 4804283-5 (Version None)
Quarter: 2005Q4

REPORT INFORMATION
  Report Type: 
  Country: None (occurrence: None)
  Receive Date: 20051018
  Receipt Date: 20051018
  Transmission Date: 20060501
  Serious: Yes (Other)
  Sender: FDA-Public Use
  Company Number: None

PATIENT
  Age: 58 Year
  Sex: Female
  Weight: 78.0187 kg

DRUGS (2)
  1. OXYCONTIN [Suspect]
     Indication: PAIN
     Dosage: 1 BID -10 MG
     Dates: start: 20021001
  2. OXYCONTIN [Suspect]
     Dosage: 1 BID 20 MG

REACTIONS (2)
  - DRUG EFFECT DECREASED [None]
  - IMPAIRED WORK ABILITY [None]
